FAERS Safety Report 16807069 (Version 6)
Quarter: 2020Q2

REPORT INFORMATION
  Report Type: Report from Study
  Country: CA (occurrence: CA)
  Receive Date: 20190913
  Receipt Date: 20200421
  Transmission Date: 20200713
  Serious: Yes (Hospitalization, Congenital Anomaly, Other)
  Sender: FDA-Public Use
  Company Number: CA-GLAXOSMITHKLINE-CA2019GSK166564

PATIENT
  Age: 0 Year
  Sex: Female
  Weight: 3.33 kg

DRUGS (3)
  1. BELIMUMAB [Suspect]
     Active Substance: BELIMUMAB
     Indication: SYSTEMIC LUPUS ERYTHEMATOSUS
     Dosage: 1000 MG, UNK
     Route: 064
  2. DEXAMETHASONE. [Concomitant]
     Active Substance: DEXAMETHASONE
     Indication: PRODUCT USED FOR UNKNOWN INDICATION
     Dosage: UNK
     Dates: start: 201908, end: 20191214
  3. FOLATE [Concomitant]
     Active Substance: FOLATE SODIUM
     Indication: PRODUCT USED FOR UNKNOWN INDICATION
     Dosage: UNK
     Dates: start: 2019

REACTIONS (10)
  - Tricuspid valve disease [Recovered/Resolved]
  - Cardiac murmur [Recovered/Resolved]
  - Foetal exposure during pregnancy [Unknown]
  - Myocarditis [Unknown]
  - Ultrasound foetal abnormal [Not Recovered/Not Resolved]
  - Congenital heart valve incompetence [Unknown]
  - Patent ductus arteriosus [Recovered/Resolved]
  - Mitral valve disease [Recovered/Resolved]
  - Ventricular extrasystoles [Recovered/Resolved]
  - Intraventricular haemorrhage neonatal [Recovered/Resolved]

NARRATIVE: CASE EVENT DATE: 20190712
